FAERS Safety Report 5807526-4 (Version None)
Quarter: 2008Q3

REPORT INFORMATION
  Report Type: 
  Country: None (occurrence: None)
  Receive Date: 20080709
  Receipt Date: 20080709
  Transmission Date: 20090109
  Serious: Yes (Other)
  Sender: FDA-Public Use
  Company Number: None

PATIENT
  Age: 76 Year
  Sex: Male
  Weight: 96.6 kg

DRUGS (2)
  1. CHOLESTYRAMINE [Suspect]
     Indication: HYPERLIPIDAEMIA
     Dosage: 4 GM BID PO
     Route: 048
     Dates: start: 20080421, end: 20080425
  2. LISINOPRIL [Suspect]
     Indication: HYPERTENSION
     Dosage: 5 MG EVERY DAY PO
     Route: 048
     Dates: start: 20080421

REACTIONS (2)
  - FLUSHING [None]
  - RASH [None]
